FAERS Safety Report 6011998-2 (Version None)
Quarter: 2008Q4

REPORT INFORMATION
  Report Type: 
  Country: None (occurrence: None)
  Receive Date: 20081218
  Receipt Date: 20081023
  Transmission Date: 20090506
  Serious: No
  Sender: FDA-Public Use
  Company Number: US-ASTRAZENECA-2008UW23674

PATIENT
  Age: 68 Year
  Sex: Female
  Weight: 57.6 kg

DRUGS (3)
  1. CRESTOR [Suspect]
     Indication: BLOOD CHOLESTEROL INCREASED
     Route: 048
     Dates: start: 20060101
  2. VERAPAMIL [Concomitant]
  3. ALTACE [Concomitant]

REACTIONS (2)
  - OSTEOARTHRITIS [None]
  - WEIGHT DECREASED [None]
